FAERS Safety Report 18732262 (Version 1)
Quarter: 2021Q1

REPORT INFORMATION
  Report Type: Spontaneous
  Country: US (occurrence: US)
  Receive Date: 20210112
  Receipt Date: 20210112
  Transmission Date: 20210419
  Serious: Yes (Other)
  Sender: FDA-Public Use
  Company Number: US-TEVA-2021-US-1866711

PATIENT
  Age: 61 Year
  Sex: Female

DRUGS (5)
  1. NEFAZODONE [Suspect]
     Active Substance: NEFAZODONE
     Indication: SLEEP DISORDER
     Dosage: 200 MILLIGRAM DAILY; 200MG PER DAY
     Route: 065
     Dates: start: 1995
  2. RESTORIL [Concomitant]
     Active Substance: TEMAZEPAM
     Dosage: 15?20MG
  3. NEFAZODONE [Suspect]
     Active Substance: NEFAZODONE
     Dosage: CURRENTLY CUTS A 100 MG TABLET INTO 4 PARTS AND AT NIGHT TAKES 25 MG
     Route: 065
  4. NEFAZODONE [Suspect]
     Active Substance: NEFAZODONE
     Dosage: 375 MILLIGRAM DAILY;
     Route: 065
  5. LUNESTA [Concomitant]
     Active Substance: ESZOPICLONE
     Indication: SLEEP DISORDER
     Dosage: 1.5 MILLIGRAM DAILY; 1.5MG

REACTIONS (9)
  - Back injury [Unknown]
  - Suicidal ideation [Unknown]
  - Road traffic accident [Unknown]
  - Concussion [Recovered/Resolved]
  - Accident [Unknown]
  - Product use in unapproved indication [Unknown]
  - Brain injury [Unknown]
  - Wrong technique in product usage process [Unknown]
  - Fall [Unknown]

NARRATIVE: CASE EVENT DATE: 20060303
